APPROVED DRUG PRODUCT: MUPIROCIN
Active Ingredient: MUPIROCIN CALCIUM
Strength: EQ 2% BASE
Dosage Form/Route: CREAM;TOPICAL
Application: A207116 | Product #001 | TE Code: AB
Applicant: SUN PHARMA CANADA INC
Approved: Apr 27, 2020 | RLD: No | RS: No | Type: RX